FAERS Safety Report 23602715 (Version 1)
Quarter: 2024Q1

REPORT INFORMATION
  Report Type: Spontaneous
  Country: US (occurrence: US)
  Receive Date: 20240306
  Receipt Date: 20240306
  Transmission Date: 20240410
  Serious: No
  Sender: FDA-Public Use
  Company Number: US-Covis Pharma GmbH-2024COV00241

PATIENT
  Age: 51 Year
  Sex: Female

DRUGS (3)
  1. RILUTEK [Suspect]
     Active Substance: RILUZOLE
     Indication: Amyotrophic lateral sclerosis
     Route: 048
  2. RELYVRIO [Suspect]
     Active Substance: SODIUM PHENYLBUTYRATE\TAURURSODIOL
     Indication: Amyotrophic lateral sclerosis
     Dosage: 1 DOSAGE FORM 1 SACHET ONCE DAILY FOR 3 WEEKS, THEN 1 SACHET TWICE DAILY, 2/DAYS
     Route: 048
     Dates: start: 202310
  3. RADICAVA ORS [Suspect]
     Active Substance: EDARAVONE
     Indication: Amyotrophic lateral sclerosis
     Dosage: 5 ML 1 TIME A DAY FOR 10 OUT OF 14 DAYS THEN 14 DAYS OFF, EVERY 1 DAYS
     Route: 048
     Dates: start: 202309

REACTIONS (1)
  - Diarrhoea [Not Recovered/Not Resolved]
